FAERS Safety Report 8613147-0 (Version None)
Quarter: 2012Q3

REPORT INFORMATION
  Report Type: 
  Country: None (occurrence: None)
  Receive Date: 20120822
  Receipt Date: 20120731
  Transmission Date: 20120928
  Serious: Yes (Disabling)
  Sender: FDA-Public Use
  Company Number: GB-009507513-1203GBR00016

PATIENT

DRUGS (13)
  1. PREDNISOLONE [Concomitant]
     Dates: start: 20111019
  2. BECLOMETHASONE DIPROPIONATE [Concomitant]
     Dates: start: 20120209
  3. FOLIC ACID [Concomitant]
     Dates: start: 20111107
  4. VENTOLIN [Concomitant]
     Dates: start: 20111107
  5. ZOCOR [Suspect]
     Route: 048
     Dates: start: 20111027
  6. LANSOPRAZOLE [Concomitant]
     Dates: start: 20111229
  7. VALSARTAN [Concomitant]
     Dates: start: 20111107
  8. BECLOMETASON CT [Concomitant]
     Dates: start: 20111107
  9. BENDROFLUMETHIAZIDE [Concomitant]
     Dates: start: 20111107
  10. VOLTAREN [Concomitant]
     Dates: start: 20111107
  11. ALENDRONATE SODIUM [Concomitant]
     Route: 048
     Dates: start: 20111107
  12. HYPROMELLOSE [Concomitant]
     Dates: start: 20111107
  13. ATREXEL [Concomitant]
     Dates: start: 20111107

REACTIONS (1)
  - PAIN [None]
